FAERS Safety Report 22302167 (Version 1)
Quarter: 2023Q2

REPORT INFORMATION
  Report Type: Spontaneous
  Country: US (occurrence: US)
  Receive Date: 20230510
  Receipt Date: 20230510
  Transmission Date: 20230722
  Serious: No
  Sender: FDA-Public Use
  Company Number: US-GSK-US2023AMR063866

PATIENT
  Sex: Female

DRUGS (1)
  1. ALBUTEROL SULFATE [Suspect]
     Active Substance: ALBUTEROL SULFATE
     Indication: Chronic obstructive pulmonary disease
     Dosage: UNK,90 MCG, 18G/200 METERED,7-8 TIMES PER DAY 2 PUFFS
     Route: 055

REACTIONS (2)
  - Hospice care [Unknown]
  - Inappropriate schedule of product administration [Unknown]
